FAERS Safety Report 13563248 (Version 1)
Quarter: 2017Q2

REPORT INFORMATION
  Report Type: Report from Study
  Country: US (occurrence: US)
  Receive Date: 20170519
  Receipt Date: 20170519
  Transmission Date: 20170830
  Serious: Yes (Other)
  Sender: FDA-Public Use
  Company Number: US-PURDUE PHARMA-USA-2017-0138930

PATIENT
  Age: 61 Year
  Sex: Male

DRUGS (1)
  1. OXYCODONE HYDROCHLORIDE. [Suspect]
     Active Substance: OXYCODONE HYDROCHLORIDE
     Indication: BACK PAIN
     Dosage: (2 X 80 MG) 160 MG, TID
     Route: 048
     Dates: start: 20170411, end: 20170511

REACTIONS (3)
  - Off label use [Recovered/Resolved]
  - Lymphoma [Unknown]
  - Throat cancer [Unknown]

NARRATIVE: CASE EVENT DATE: 20170411
